FAERS Safety Report 16585124 (Version 2)
Quarter: 2019Q3

REPORT INFORMATION
  Report Type: Spontaneous
  Country: KR (occurrence: KR)
  Receive Date: 20190717
  Receipt Date: 20190731
  Transmission Date: 20191004
  Serious: Yes (Death)
  Sender: FDA-Public Use
  Company Number: KR-ASTRAZENECA-2019SF01031

PATIENT
  Age: 70 Year
  Sex: Female

DRUGS (5)
  1. TAGRISSO [Suspect]
     Active Substance: OSIMERTINIB
     Indication: NON-SMALL CELL LUNG CANCER
     Route: 048
     Dates: start: 20181111, end: 20190408
  2. SYNTHYROXINE [Concomitant]
     Active Substance: LEVOTHYROXINE SODIUM
     Indication: HYPERTHYROIDISM
     Dates: end: 20190407
  3. DICAMAX D [Concomitant]
     Indication: CALCIUM DEFICIENCY
     Dates: start: 20190128, end: 20190407
  4. IRCODONE [Concomitant]
     Indication: PAIN
     Dates: start: 20181109, end: 201903
  5. NEUROTINE [Concomitant]
     Indication: NEUROPATHY PERIPHERAL
     Dates: start: 20190126, end: 20190407

REACTIONS (1)
  - Pneumonia [Fatal]

NARRATIVE: CASE EVENT DATE: 20190405
